FAERS Safety Report 16609454 (Version 1)
Quarter: 2019Q3

REPORT INFORMATION
  Report Type: Spontaneous
  Country: US (occurrence: US)
  Receive Date: 20190607
  Receipt Date: 20190607
  Transmission Date: 20191004
  Serious: Yes (Hospitalization)
  Sender: FDA-Public Use
  Company Number: None

PATIENT
  Age: 32 Year
  Sex: Female

DRUGS (1)
  1. JADENU [Suspect]
     Active Substance: DEFERASIROX
     Indication: DRUG THERAPY
     Dosage: ?          OTHER DOSE:3 TABS;?
     Route: 048
     Dates: start: 20160317, end: 20190314

REACTIONS (1)
  - Product dose omission [None]

NARRATIVE: CASE EVENT DATE: 20190606
